FAERS Safety Report 18406119 (Version 1)
Quarter: 2020Q4

REPORT INFORMATION
  Report Type: Spontaneous
  Country: BR (occurrence: BR)
  Receive Date: 20201020
  Receipt Date: 20201020
  Transmission Date: 20210114
  Serious: Yes (Other)
  Sender: FDA-Public Use
  Company Number: NVSC2020BR280697

PATIENT
  Age: 34 Year
  Sex: Female

DRUGS (1)
  1. IMATINIB. [Suspect]
     Active Substance: IMATINIB MESYLATE
     Indication: CHRONIC MYELOID LEUKAEMIA
     Dosage: 400 MG, QD
     Route: 065
     Dates: start: 20130313

REACTIONS (5)
  - Maternal exposure during pregnancy [Unknown]
  - Pancytopenia [Unknown]
  - Product availability issue [Unknown]
  - Postpartum haemorrhage [Unknown]
  - Treatment failure [Unknown]

NARRATIVE: CASE EVENT DATE: 20130613
